FAERS Safety Report 10641371 (Version 3)
Quarter: 2015Q1

REPORT INFORMATION
  Report Type: Spontaneous
  Country: BR (occurrence: BR)
  Receive Date: 20141209
  Receipt Date: 20150218
  Transmission Date: 20150720
  Serious: Yes (Hospitalization)
  Sender: FDA-Public Use
  Company Number: PHHY2014BR161003

PATIENT
  Age: 70 Year
  Sex: Female

DRUGS (1)
  1. FORASEQ [Suspect]
     Active Substance: BUDESONIDE\FORMOTEROL FUMARATE
     Indication: ASTHMA
     Dosage: 1 DF, QD
     Route: 055

REACTIONS (11)
  - Endometrial cancer [Recovered/Resolved]
  - Device malfunction [Recovered/Resolved]
  - Impaired healing [Recovered/Resolved]
  - Food poisoning [Recovered/Resolved]
  - Gastrointestinal pain [Recovered/Resolved]
  - Nosocomial infection [Recovered/Resolved]
  - Pyrexia [Recovered/Resolved]
  - Retching [Recovered/Resolved]
  - Skin burning sensation [Recovered/Resolved]
  - Liver disorder [Recovered/Resolved]
  - Postoperative wound complication [Recovered/Resolved]

NARRATIVE: CASE EVENT DATE: 20141106
